FAERS Safety Report 8838263 (Version 1)
Quarter: 2012Q4

REPORT INFORMATION
  Report Type: 
  Country: US (occurrence: US)
  Receive Date: 20121012
  Receipt Date: 20121012
  Transmission Date: 20130627
  Serious: Yes (Hospitalization)
  Sender: FDA-Public Use
  Company Number: US-ROCHE-1132752

PATIENT
  Sex: Male
  Weight: 49 kg

DRUGS (4)
  1. NUTROPIN [Suspect]
     Indication: HYPOPITUITARISM
     Route: 058
     Dates: start: 19940131
  2. HYDROCORTISONE [Concomitant]
     Route: 065
  3. SYNTHROID [Concomitant]
     Route: 065
  4. WELLBUTRIN [Concomitant]

REACTIONS (2)
  - Vomiting [Unknown]
  - Dehydration [Unknown]
